FAERS Safety Report 19183518 (Version 1)
Quarter: 2021Q2

REPORT INFORMATION
  Report Type: Spontaneous
  Country: US (occurrence: US)
  Receive Date: 20210424
  Receipt Date: 20210424
  Transmission Date: 20210717
  Serious: No
  Sender: FDA-Public Use
  Company Number: None

PATIENT
  Age: 57 Year
  Sex: Female
  Weight: 108.5 kg

DRUGS (1)
  1. TEMOZOLOMIDE. [Suspect]
     Active Substance: TEMOZOLOMIDE
     Dates: end: 20210413

REACTIONS (4)
  - Platelet count decreased [None]
  - Contusion [None]
  - Petechiae [None]
  - Urinary tract infection [None]

NARRATIVE: CASE EVENT DATE: 20210419
